FAERS Safety Report 7018099-5 (Version None)
Quarter: 2010Q3

REPORT INFORMATION
  Report Type: 
  Country: None (occurrence: None)
  Receive Date: 20100928
  Receipt Date: 20100924
  Transmission Date: 20110219
  Serious: Yes (Other)
  Sender: FDA-Public Use
  Company Number: PHHY2010CA60708

PATIENT
  Sex: Female

DRUGS (4)
  1. ACLASTA/ZOLEDRONATE T29581+A+ [Suspect]
  2. ACTONEL [Concomitant]
     Dosage: 35 MG/WEEKLY
     Dates: start: 20050702
  3. CALCIUM [Concomitant]
     Dosage: 500 MG, BID
     Dates: start: 19880101
  4. VITAMIN D [Concomitant]
     Dosage: 400 MG, BID

REACTIONS (3)
  - BUNION [None]
  - FOOT DEFORMITY [None]
  - FOOT OPERATION [None]
